FAERS Safety Report 15366659 (Version 3)
Quarter: 2024Q2

REPORT INFORMATION
  Report Type: Report from Study
  Country: JP (occurrence: JP)
  Receive Date: 20180910
  Receipt Date: 20240422
  Transmission Date: 20240715
  Serious: Yes (Hospitalization, Other)
  Sender: FDA-Public Use
  Company Number: JP-GLAXOSMITHKLINE-JP2018JPN135924

PATIENT

DRUGS (23)
  1. BELIMUMAB [Suspect]
     Active Substance: BELIMUMAB
     Indication: Systemic lupus erythematosus
     Dosage: 10 MG/KG, PER TWO WEEKS
     Route: 041
     Dates: start: 20180130, end: 20180227
  2. BELIMUMAB [Suspect]
     Active Substance: BELIMUMAB
     Dosage: 10 MG/KG, 1D
     Route: 041
     Dates: start: 20180326, end: 20180326
  3. BELIMUMAB [Suspect]
     Active Substance: BELIMUMAB
     Indication: Systemic lupus erythematosus
     Dosage: 200 MG, WE
     Route: 058
     Dates: start: 20180423, end: 20180725
  4. PREDNISOLONE [Suspect]
     Active Substance: PREDNISOLONE
     Indication: Systemic lupus erythematosus
     Dosage: 30 MG, QD
     Dates: start: 20180125, end: 20180202
  5. PREDNISOLONE [Suspect]
     Active Substance: PREDNISOLONE
     Indication: Diffuse large B-cell lymphoma
     Dosage: 25 MG, QD
     Dates: start: 20180203, end: 20180213
  6. PREDNISOLONE [Suspect]
     Active Substance: PREDNISOLONE
     Indication: Lymphoproliferative disorder
     Dosage: 20 MG, QD
     Dates: start: 20180214, end: 20180227
  7. PREDNISOLONE [Suspect]
     Active Substance: PREDNISOLONE
     Indication: Autoimmune disorder
     Dosage: 17.5 MG, QD
     Dates: start: 20180228, end: 20180326
  8. PREDNISOLONE [Suspect]
     Active Substance: PREDNISOLONE
     Dosage: 15 MG, QD
     Dates: start: 20180327, end: 20180423
  9. PREDNISOLONE [Suspect]
     Active Substance: PREDNISOLONE
     Dosage: 12.5 MG, QD
     Dates: start: 20180424, end: 20180514
  10. PREDNISOLONE [Suspect]
     Active Substance: PREDNISOLONE
     Dosage: 10 MG, QD
     Dates: start: 20180515, end: 20180709
  11. PREDNISOLONE [Suspect]
     Active Substance: PREDNISOLONE
     Dosage: 15 MG, QD
     Dates: start: 20180710, end: 20180801
  12. PREDNISOLONE [Suspect]
     Active Substance: PREDNISOLONE
     Dosage: UNK
     Dates: start: 20180926
  13. PROGRAF [Suspect]
     Active Substance: TACROLIMUS
     Indication: Systemic lupus erythematosus
     Dosage: UNK
     Route: 048
  14. HYDROXYCHLOROQUINE [Concomitant]
     Active Substance: HYDROXYCHLOROQUINE
     Indication: Systemic lupus erythematosus
     Dosage: UNK
     Dates: end: 20180611
  15. ALFACALCIDOL [Concomitant]
     Active Substance: ALFACALCIDOL
     Dosage: UNK
  16. ESOMEPRAZOLE [Concomitant]
     Active Substance: ESOMEPRAZOLE
     Dosage: UNK
  17. ALENDRONATE SODIUM [Concomitant]
     Active Substance: ALENDRONATE SODIUM
     Dosage: UNK
  18. SULFAMETHOXAZOLE\TRIMETHOPRIM [Concomitant]
     Active Substance: SULFAMETHOXAZOLE\TRIMETHOPRIM
     Indication: Antifungal prophylaxis
     Dosage: UNK
  19. ISCOTIN [Concomitant]
     Active Substance: ISONIAZID
     Indication: Antibiotic prophylaxis
     Dosage: UNK
  20. LOXOPROFEN [Concomitant]
     Active Substance: LOXOPROFEN
     Indication: Systemic lupus erythematosus
     Dosage: UNK
  21. PYRIDOXAL CALCIUM PHOSPHATE [Concomitant]
     Indication: Prophylaxis
     Dosage: UNK
  22. MOSAPRIDE CITRATE [Concomitant]
     Active Substance: MOSAPRIDE CITRATE
     Dosage: UNK
  23. HERBAL NOS [Concomitant]
     Active Substance: HERBALS
     Dosage: UNK

REACTIONS (5)
  - Oral candidiasis [Recovering/Resolving]
  - Diffuse large B-cell lymphoma [Recovering/Resolving]
  - Lymphoproliferative disorder [Recovering/Resolving]
  - Autoimmune disorder [Recovering/Resolving]
  - Nasopharyngitis [Recovered/Resolved]

NARRATIVE: CASE EVENT DATE: 20180222
